FAERS Safety Report 12157217 (Version 1)
Quarter: 2016Q1

REPORT INFORMATION
  Report Type: Spontaneous
  Country: FR (occurrence: FR)
  Receive Date: 20160308
  Receipt Date: 20160308
  Transmission Date: 20160526
  Serious: Yes (Death)
  Sender: FDA-Public Use
  Company Number: FR-CIPLA LTD.-2016FR01990

PATIENT

DRUGS (2)
  1. CARBOPLATIN. [Suspect]
     Active Substance: CARBOPLATIN
     Indication: LUNG SQUAMOUS CELL CARCINOMA STAGE IV
     Dosage: AREA UNDER THE CURVE 5 ON DAY 1 ON EACH CYCLE OF CHEMOTHERAPY EVERY 3 WEEKS
     Route: 065
  2. GEMCITABINE [Suspect]
     Active Substance: GEMCITABINE\GEMCITABINE HYDROCHLORIDE
     Indication: LUNG SQUAMOUS CELL CARCINOMA STAGE IV
     Dosage: 1,000 MG/M2 ON DAYS 1 TO 8 ON EACH CYCLE OF CHEMOTHERAPY EVERY 3 WEEKS
     Route: 065

REACTIONS (1)
  - Death [Fatal]
